FAERS Safety Report 11553124 (Version 7)
Quarter: 2017Q1

REPORT INFORMATION
  Report Type: Spontaneous
  Country: US (occurrence: US)
  Receive Date: 20150925
  Receipt Date: 20170127
  Transmission Date: 20170428
  Serious: No
  Sender: FDA-Public Use
  Company Number: US-GLAXOSMITHKLINE-US2015GSK103853

PATIENT
  Sex: Female

DRUGS (8)
  1. CLINDAMYCIN. [Concomitant]
     Active Substance: CLINDAMYCIN
  2. MEPRON [Suspect]
     Active Substance: ATOVAQUONE
     Indication: MALARIA
  3. AMOXICILLIN. [Concomitant]
     Active Substance: AMOXICILLIN
  4. MEPRON [Suspect]
     Active Substance: ATOVAQUONE
     Dosage: UNK
  5. MEPRON [Suspect]
     Active Substance: ATOVAQUONE
     Indication: PRODUCT USED FOR UNKNOWN INDICATION
     Dosage: UNK
  6. MEPRON [Suspect]
     Active Substance: ATOVAQUONE
     Indication: BABESIOSIS
     Dosage: 5 ML, BID
     Route: 048
  7. MALARONE [Suspect]
     Active Substance: ATOVAQUONE\PROGUANIL HYDROCHLORIDE
     Indication: MALARIA
     Dosage: UNK, U
  8. ATOVAQUONE ORAL SUSPENSION [Suspect]
     Active Substance: ATOVAQUONE
     Indication: MALARIA
     Dosage: UNK
     Dates: start: 2013

REACTIONS (12)
  - Incorrect product storage [Unknown]
  - Influenza [Recovering/Resolving]
  - Product use issue [Not Recovered/Not Resolved]
  - Drug effect decreased [Unknown]
  - Product substitution issue [Unknown]
  - Off label use [Not Recovered/Not Resolved]
  - Hyperhidrosis [Recovered/Resolved]
  - Cough [Unknown]
  - Ligament sprain [Unknown]
  - Chills [Recovered/Resolved]
  - Paraesthesia [Unknown]
  - Drug ineffective [Unknown]

NARRATIVE: CASE EVENT DATE: 2013
